FAERS Safety Report 6866530-8 (Version None)
Quarter: 2010Q3

REPORT INFORMATION
  Report Type: 
  Country: None (occurrence: None)
  Receive Date: 20100722
  Receipt Date: 20100709
  Transmission Date: 20110219
  Serious: Yes (Other)
  Sender: FDA-Public Use
  Company Number: PHHY2010JP40688

PATIENT
  Age: 70 Year
  Sex: Female

DRUGS (1)
  1. LAMISIL [Suspect]
     Dosage: 125 MG DAILY
     Route: 048
     Dates: end: 20100601

REACTIONS (2)
  - ASPARTATE AMINOTRANSFERASE INCREASED [None]
  - LIVER DISORDER [None]
